FAERS Safety Report 4747863-8 (Version None)
Quarter: 2005Q3

REPORT INFORMATION
  Report Type: 
  Country: None (occurrence: None)
  Receive Date: 20050816
  Receipt Date: 20050804
  Transmission Date: 20060218
  Serious: Yes (Other)
  Sender: FDA-Public Use
  Company Number: 200512993BCC

PATIENT
  Age: 36 Year
  Sex: Female
  Weight: 99.7913 kg

DRUGS (2)
  1. ALEVE (CAPLET) [Suspect]
     Indication: MIGRAINE
     Dosage: 220-440 MG, ORAL
     Route: 048
     Dates: start: 20050719
  2. BC HEADACHE POWDER [Suspect]

REACTIONS (2)
  - CYSTITIS [None]
  - METRORRHAGIA [None]
